FAERS Safety Report 12873482 (Version 1)
Quarter: 2016Q4

REPORT INFORMATION
  Report Type: Spontaneous
  Country: US (occurrence: US)
  Receive Date: 20161021
  Receipt Date: 20161021
  Transmission Date: 20170207
  Serious: Yes (Other)
  Sender: FDA-Public Use
  Company Number: US-VERTEX PHARMACEUTICALS-2016-005930

PATIENT
  Sex: Male

DRUGS (14)
  1. ORKAMBI [Suspect]
     Active Substance: IVACAFTOR\LUMACAFTOR
     Indication: CYSTIC FIBROSIS
     Dosage: UNK
     Route: 048
     Dates: start: 20150715
  2. ADVAIR DISKUS [Concomitant]
     Active Substance: FLUTICASONE PROPIONATE\SALMETEROL XINAFOATE
  3. CALCIUM [Concomitant]
     Active Substance: CALCIUM
  4. AQUADEKS [Concomitant]
     Active Substance: MINERALS\VITAMINS
  5. ZITHROMAX [Concomitant]
     Active Substance: AZITHROMYCIN DIHYDRATE
  6. ALBUTEROL SULFATE. [Concomitant]
     Active Substance: ALBUTEROL SULFATE
  7. TOBI [Concomitant]
     Active Substance: TOBRAMYCIN
  8. LEVEMIR [Concomitant]
     Active Substance: INSULIN DETEMIR
  9. CREON [Concomitant]
     Active Substance: PANCRELIPASE AMYLASE\PANCRELIPASE LIPASE\PANCRELIPASE PROTEASE
  10. SINGULAIR [Concomitant]
     Active Substance: MONTELUKAST SODIUM
  11. HYPERSAL [Concomitant]
  12. PULMOZYME [Concomitant]
     Active Substance: DORNASE ALFA
  13. VITAMIN D3 [Concomitant]
     Active Substance: CHOLECALCIFEROL
  14. CAYSTON [Concomitant]
     Active Substance: AZTREONAM

REACTIONS (2)
  - Lung transplant [Unknown]
  - Drug screen false positive [Recovered/Resolved]

NARRATIVE: CASE EVENT DATE: 2016
